FAERS Safety Report 7356726 (Version 3)
Quarter: 2013Q4

REPORT INFORMATION
  Report Type: Spontaneous
  Country: US (occurrence: US)
  Receive Date: 20100416
  Receipt Date: 20131224
  Transmission Date: 20140711
  Serious: Yes (Hospitalization, Other)
  Sender: FDA-Public Use
  Company Number: US-BAYER-201019095NA

PATIENT
  Age: 32 Year
  Sex: Female
  Weight: 154.55 kg

DRUGS (20)
  1. YAZ [Suspect]
     Indication: PREMENSTRUAL SYNDROME
     Route: 048
     Dates: start: 200608, end: 200707
  2. TRAZODONE [Concomitant]
     Indication: DEPRESSION
     Dates: start: 2002, end: 2010
  3. TRAMADOL [Concomitant]
     Indication: PAIN
     Dates: start: 2002, end: 2010
  4. SULFAMETH/TRIMETHOPRIM [Concomitant]
     Indication: BACTERIAL INFECTION
     Dates: start: 2002, end: 2010
  5. RANITIDINE [Concomitant]
     Indication: DYSPEPSIA
     Dates: start: 2001, end: 2010
  6. RANITIDINE [Concomitant]
     Indication: GASTROOESOPHAGEAL REFLUX DISEASE
  7. MAXALT [Concomitant]
     Indication: MIGRAINE
     Dates: start: 2003, end: 2010
  8. HYDROCODONE [Concomitant]
     Indication: PAIN
     Dates: start: 2001, end: 2010
  9. BACLOFEN [Concomitant]
     Indication: MUSCLE SPASTICITY
     Dates: start: 2003, end: 2010
  10. ATENOLOL [Concomitant]
     Indication: HYPERTENSION
     Dates: start: 2001, end: 2010
  11. ACTOS [Concomitant]
     Indication: DIABETES MELLITUS
     Dates: start: 2005, end: 2010
  12. ULTRAM [Concomitant]
     Dosage: UNK
  13. TRICOR [Concomitant]
     Dosage: 145 MG, UNK
     Route: 048
  14. DIOVAN [Concomitant]
     Dosage: 80MG/12.5MG
     Route: 048
  15. SIMVASTATIN [Concomitant]
     Dosage: 20MG
  16. CEPHALEXIN [Concomitant]
     Dosage: 500MG
     Route: 048
  17. ABILIFY [Concomitant]
     Dosage: 10MG
     Route: 048
  18. QVAR [Concomitant]
  19. VALIUM [Concomitant]
  20. DUONEB [Concomitant]

REACTIONS (4)
  - Convulsion [Unknown]
  - Abdominal pain [None]
  - Cholelithiasis [None]
  - Cholecystitis [None]
